FAERS Safety Report 9954298 (Version 1)
Quarter: 2014Q1

REPORT INFORMATION
  Report Type: Report from Study
  Country: US (occurrence: US)
  Receive Date: 20140304
  Receipt Date: 20140304
  Transmission Date: 20141002
  Serious: No
  Sender: FDA-Public Use
  Company Number: US-ABBVIE-13P-163-1076035-00

PATIENT
  Age: 47 Year
  Sex: Female

DRUGS (16)
  1. HUMIRA [Suspect]
     Indication: CROHN^S DISEASE
     Dosage: LOADING DOSE
  2. PENTASA [Concomitant]
     Indication: CROHN^S DISEASE
     Route: 048
  3. PROTONIX [Concomitant]
     Indication: DYSPEPSIA
     Route: 048
  4. POTASSIUM [Concomitant]
     Indication: HYPOKALAEMIA
     Route: 048
  5. VITAMIN B 12 [Concomitant]
     Indication: CROHN^S DISEASE
     Dosage: DAILY
     Route: 060
  6. ENTOCORT [Concomitant]
     Indication: CROHN^S DISEASE
     Route: 048
  7. MAG 64 [Concomitant]
     Indication: MAGNESIUM DEFICIENCY
     Route: 048
  8. AZELASTINE [Concomitant]
     Indication: HYPERSENSITIVITY
     Dosage: 1 SPRAY, EACH NOSTRIL, TWICE DAILY
  9. AZELASTINE [Concomitant]
     Indication: HEADACHE
  10. FLUTICASONE PROPIONATE [Concomitant]
     Indication: HYPERSENSITIVITY
     Dosage: 2 SPRAYS, EACH NOSTRIL, DAILY
  11. FLUTICASONE PROPIONATE [Concomitant]
     Indication: HEADACHE
  12. MAXALT [Concomitant]
     Indication: MIGRAINE
     Route: 048
  13. ERGO 7 [Concomitant]
     Indication: VITAMIN SUPPLEMENTATION
  14. BACTIUM PROBIOTIC [Concomitant]
     Indication: PRODUCT USED FOR UNKNOWN INDICATION
     Dosage: DAILY
     Route: 048
  15. VITAMIN C [Concomitant]
     Indication: VITAMIN SUPPLEMENTATION
     Dosage: DAILY
     Route: 048
  16. VITAMIN D 3 [Concomitant]
     Indication: VITAMIN SUPPLEMENTATION
     Route: 048

REACTIONS (2)
  - Swelling [Not Recovered/Not Resolved]
  - Weight increased [Not Recovered/Not Resolved]
